FAERS Safety Report 4850130-5 (Version None)
Quarter: 2005Q4

REPORT INFORMATION
  Report Type: 
  Country: None (occurrence: None)
  Receive Date: 20051123
  Receipt Date: 20050314
  Transmission Date: 20060501
  Serious: Yes (Other)
  Sender: FDA-Public Use
  Company Number: 2005044614

PATIENT
  Age: 82 Year
  Sex: Female

DRUGS (7)
  1. LIPITOR [Suspect]
     Indication: ILL-DEFINED DISORDER
     Dosage: ORAL
     Route: 048
  2. NORVASC [Suspect]
     Indication: ILL-DEFINED DISORDER
     Dosage: ORAL
     Route: 048
  3. WARFARIN SODIUM [Suspect]
     Indication: ATRIAL FIBRILLATION
     Dosage: 5 MG (1 IN 1 D),ORAL
     Route: 048
     Dates: start: 20050101
  4. VALSARTAN [Concomitant]
  5. DOXAZOSIN MESYLATE [Concomitant]
  6. ROSIGLITAZONE MALEATE [Concomitant]
  7. HYDROCHLOROTHIAZIDE [Concomitant]

REACTIONS (6)
  - ASTHENIA [None]
  - ATRIAL FIBRILLATION [None]
  - HYPERTENSION [None]
  - MUSCLE SPASMS [None]
  - OEDEMA PERIPHERAL [None]
  - RED BLOOD CELL COUNT DECREASED [None]
